FAERS Safety Report 5700557-4 (Version None)
Quarter: 2008Q2

REPORT INFORMATION
  Report Type: 
  Country: None (occurrence: None)
  Receive Date: 20080410
  Receipt Date: 20080404
  Transmission Date: 20081010
  Serious: Yes (Other)
  Sender: FDA-Public Use
  Company Number: US-PFIZER INC-2008029865

PATIENT
  Sex: Female
  Weight: 86.2 kg

DRUGS (2)
  1. DETROL LA [Suspect]
     Indication: POLLAKIURIA
  2. VALSARTAN [Concomitant]

REACTIONS (3)
  - LIP SWELLING [None]
  - PRURITUS [None]
  - URTICARIA [None]
